FAERS Safety Report 11305536 (Version 1)
Quarter: 2015Q3

REPORT INFORMATION
  Report Type: Spontaneous
  Country: US (occurrence: US)
  Receive Date: 20150723
  Receipt Date: 20150723
  Transmission Date: 20151125
  Serious: No
  Sender: FDA-Public Use
  Company Number: US-JNJFOC-20150704061

PATIENT
  Age: 35 Year
  Sex: Female
  Weight: 70.31 kg

DRUGS (16)
  1. PANAX GINSENG [Concomitant]
     Active Substance: ASIAN GINSENG
     Indication: MULTIPLE ALLERGIES
     Route: 065
     Dates: start: 2010
  2. BENADRYL [Concomitant]
     Active Substance: DIPHENHYDRAMINE HYDROCHLORIDE
     Indication: MULTIPLE ALLERGIES
     Route: 065
     Dates: start: 2008
  3. ALBUTEROL. [Concomitant]
     Active Substance: ALBUTEROL
     Indication: DYSPNOEA
     Route: 065
  4. BUSPAR [Concomitant]
     Active Substance: BUSPIRONE HYDROCHLORIDE
     Indication: ANXIETY
     Route: 065
  5. LACHESIS MUTUS [Concomitant]
     Active Substance: LACHESIS MUTA VENOM
     Indication: HOMEOPATHY
     Route: 065
  6. ZYRTEC [Suspect]
     Active Substance: CETIRIZINE HYDROCHLORIDE
     Indication: FOOD ALLERGY
     Dosage: ABOUT 14 HOURS APART
     Route: 048
  7. LORAZEPAM. [Concomitant]
     Active Substance: LORAZEPAM
     Indication: PANIC ATTACK
     Route: 065
  8. PREDNISONE. [Concomitant]
     Active Substance: PREDNISONE
     Indication: MULTIPLE ALLERGIES
     Route: 065
  9. ZYRTEC [Suspect]
     Active Substance: CETIRIZINE HYDROCHLORIDE
     Indication: ALLERGY TO ANIMAL
     Dosage: ABOUT 14 HOURS APART
     Route: 048
  10. ZYRTEC [Suspect]
     Active Substance: CETIRIZINE HYDROCHLORIDE
     Indication: HYPERSENSITIVITY
     Dosage: ABOUT 14 HOURS APART
     Route: 048
  11. ZYRTEC [Suspect]
     Active Substance: CETIRIZINE HYDROCHLORIDE
     Indication: ALLERGY TO CHEMICALS
     Dosage: ABOUT 14 HOURS APART
     Route: 048
  12. ALBUTEROL. [Concomitant]
     Active Substance: ALBUTEROL
     Indication: DYSPNOEA
     Route: 065
  13. PREDNISONE. [Concomitant]
     Active Substance: PREDNISONE
     Indication: ANAPHYLACTIC REACTION
     Route: 065
  14. QVAR [Concomitant]
     Active Substance: BECLOMETHASONE DIPROPIONATE
     Indication: DYSPNOEA
     Route: 065
  15. PROBIOTIC [Concomitant]
     Active Substance: PROBIOTICS NOS
     Indication: PRODUCT USED FOR UNKNOWN INDICATION
     Dosage: DAILY
     Route: 065
  16. CORTISONE [Concomitant]
     Active Substance: CORTISONE\HYDROCORTISONE
     Indication: MULTIPLE ALLERGIES
     Route: 065

REACTIONS (4)
  - Product use issue [Unknown]
  - Product label issue [Unknown]
  - Therapeutic response unexpected [Unknown]
  - Overdose [Unknown]
